FAERS Safety Report 6241738-3 (Version None)
Quarter: 2009Q2

REPORT INFORMATION
  Report Type: 
  Country: None (occurrence: None)
  Receive Date: 20090623
  Receipt Date: 20070202
  Transmission Date: 20091009
  Serious: Yes (Other)
  Sender: FDA-Public Use
  Company Number: JP-ROCHE-473674

PATIENT
  Sex: Male
  Weight: 63 kg

DRUGS (24)
  1. CELLCEPT [Suspect]
     Route: 048
     Dates: start: 20021117, end: 20021118
  2. CELLCEPT [Suspect]
     Route: 048
     Dates: start: 20030111, end: 20030207
  3. CELLCEPT [Suspect]
     Route: 048
     Dates: start: 20030307
  4. SIMULECT [Suspect]
     Route: 042
     Dates: start: 20021111, end: 20021111
  5. SIMULECT [Suspect]
     Route: 042
     Dates: start: 20021115, end: 20021115
  6. SANDIMMUNE [Suspect]
     Route: 042
     Dates: start: 20021111, end: 20021117
  7. SOLU-MEDROL [Suspect]
     Route: 042
     Dates: start: 20021111, end: 20021120
  8. SOLU-MEDROL [Suspect]
     Route: 042
     Dates: start: 20021121, end: 20021223
  9. SOLU-MEDROL [Suspect]
     Route: 042
     Dates: start: 20021124, end: 20021201
  10. SOLU-MEDROL [Suspect]
     Route: 042
     Dates: start: 20021219, end: 20021221
  11. SOLU-MEDROL [Suspect]
     Route: 042
     Dates: start: 20021227, end: 20021227
  12. SOLU-MEDROL [Suspect]
     Route: 042
     Dates: start: 20021228, end: 20021228
  13. SOLU-MEDROL [Suspect]
     Route: 042
     Dates: start: 20021229, end: 20021229
  14. NEORAL [Suspect]
     Route: 048
     Dates: start: 20021117, end: 20021227
  15. PREDNISOLONE [Suspect]
     Route: 048
     Dates: start: 20021201, end: 20030323
  16. PREDNISOLONE [Suspect]
     Route: 048
     Dates: start: 20030324, end: 20050113
  17. PROGRAF [Suspect]
     Route: 048
     Dates: start: 20021228, end: 20030106
  18. PROGRAF [Suspect]
     Route: 048
     Dates: start: 20030107, end: 20030123
  19. PROGRAF [Suspect]
     Route: 048
     Dates: start: 20030124
  20. BREDININ [Suspect]
     Route: 048
     Dates: start: 20021229, end: 20030111
  21. ACECOL [Concomitant]
     Route: 048
     Dates: start: 20030120
  22. CALSLOT [Concomitant]
     Route: 048
     Dates: start: 20030121
  23. DIOVAN [Concomitant]
     Route: 048
     Dates: start: 20030123
  24. BENET [Concomitant]
     Route: 048
     Dates: start: 20040715

REACTIONS (3)
  - BK VIRUS INFECTION [None]
  - CYTOMEGALOVIRUS INFECTION [None]
  - TRANSPLANT REJECTION [None]
